FAERS Safety Report 9499667 (Version 2)
Quarter: 2014Q1

REPORT INFORMATION
  Report Type: Spontaneous
  Country: FR (occurrence: FR)
  Receive Date: 20130905
  Receipt Date: 20140225
  Transmission Date: 20141002
  Serious: Yes (Death, Hospitalization, Other)
  Sender: FDA-Public Use
  Company Number: FR-UCBSA-096489

PATIENT
  Sex: Male

DRUGS (5)
  1. NEUPRO [Suspect]
     Indication: PARKINSON^S DISEASE
     Route: 062
  2. NEUPRO [Suspect]
     Indication: PARKINSON^S DISEASE
     Route: 062
     Dates: end: 2013
  3. ATARAX [Suspect]
     Dosage: UNKNOWN DOSE
  4. ALDACTONE [Suspect]
     Dosage: UNKNOWN DOSE
  5. VALDOXAN [Suspect]
     Dosage: UNKNOWN DOSE

REACTIONS (2)
  - Death [Fatal]
  - Coma [Recovered/Resolved]
